FAERS Safety Report 19017516 (Version 2)
Quarter: 2021Q1

REPORT INFORMATION
  Report Type: Spontaneous
  Country: ES (occurrence: ES)
  Receive Date: 20210317
  Receipt Date: 20210322
  Transmission Date: 20210420
  Serious: Yes (Other)
  Sender: FDA-Public Use
  Company Number: ES-AUROBINDO-AUR-APL-2021-010932

PATIENT
  Age: 85 Year
  Sex: Female

DRUGS (13)
  1. LERCANIDIPINE [Suspect]
     Active Substance: LERCANIDIPINE
     Indication: HYPERTENSION
     Dosage: 10 MILLIGRAM (0?1?0)
     Route: 048
  2. LERCANIDIPINE [Suspect]
     Active Substance: LERCANIDIPINE
     Dosage: 20 MILLIGRAM (1?0?0)
     Route: 048
  3. SULODEXIDE [Concomitant]
     Active Substance: SULODEXIDE
     Indication: PRODUCT USED FOR UNKNOWN INDICATION
     Dosage: UNK (2?2?0)
     Route: 048
     Dates: start: 201904
  4. LERCANIDIPINE [Suspect]
     Active Substance: LERCANIDIPINE
     Dosage: 10 MILLIGRAM (0.5?1?0)
     Route: 048
  5. LEVOTIROXINA [Concomitant]
     Active Substance: LEVOTHYROXINE
     Indication: PRODUCT USED FOR UNKNOWN INDICATION
     Dosage: 50 MICROGRAM (1?0?0)
     Route: 048
  6. LORMETAZEPAM [Concomitant]
     Active Substance: LORMETAZEPAM
     Indication: PRODUCT USED FOR UNKNOWN INDICATION
     Dosage: UNK (0?0?1)
     Route: 048
  7. ACETYLSALICYLIC ACID;ATORVASTATIN;RAMIPRIL [Interacting]
     Active Substance: ASPIRIN\ATORVASTATIN CALCIUM\RAMIPRIL
     Indication: HYPERTENSION
     Dosage: UNK (1?0?0)
     Route: 048
  8. MAGNESIUM [Concomitant]
     Active Substance: MAGNESIUM
     Indication: PRODUCT USED FOR UNKNOWN INDICATION
     Dosage: UNK (2?1?0)
     Route: 048
  9. IRBESARTAN 150 MG [Interacting]
     Active Substance: IRBESARTAN
     Dosage: 150 MILLIGRAM (1/0/0)
     Route: 048
     Dates: start: 201904
  10. PROPRANOLOL [Concomitant]
     Active Substance: PROPRANOLOL HYDROCHLORIDE
     Indication: PRODUCT USED FOR UNKNOWN INDICATION
     Dosage: UNK (1?0?0)
     Route: 048
  11. IRBESARTAN 150 MG [Suspect]
     Active Substance: IRBESARTAN
     Indication: HYPERTENSION
     Dosage: 150 MILLIGRAM (1?0?1)
     Route: 048
  12. BISOPROLOL [Concomitant]
     Active Substance: BISOPROLOL
     Indication: PRODUCT USED FOR UNKNOWN INDICATION
     Dosage: UNK (0.5?0?0)
     Route: 048
  13. GINKGO BILOBA LEAF EXTRACT [Concomitant]
     Active Substance: GINKGO BILOBA LEAF EXTRACT
     Indication: PRODUCT USED FOR UNKNOWN INDICATION
     Dosage: UNK, (2?0?0)
     Route: 048
     Dates: start: 201904

REACTIONS (4)
  - Incorrect dose administered [Recovered/Resolved]
  - Treatment noncompliance [Recovered/Resolved]
  - Blood pressure inadequately controlled [Recovered/Resolved]
  - Potentiating drug interaction [Recovered/Resolved]
